FAERS Safety Report 6260553-8 (Version None)
Quarter: 2009Q3

REPORT INFORMATION
  Report Type: 
  Country: None (occurrence: None)
  Receive Date: 20090708
  Receipt Date: 20090706
  Transmission Date: 20100115
  Serious: Yes (Death)
  Sender: FDA-Public Use
  Company Number: PHEH2009US06813

PATIENT
  Sex: Male

DRUGS (3)
  1. TASIGNA [Suspect]
     Indication: ESSENTIAL THROMBOCYTHAEMIA
     Dosage: 400 MG, BID
     Route: 048
     Dates: start: 20080919
  2. TASIGNA [Suspect]
     Indication: LYMPHATIC DISORDER
  3. GLEEVEC [Suspect]
     Indication: LYMPHATIC DISORDER
     Dosage: 400 MG, QD
     Route: 048
     Dates: start: 20080822

REACTIONS (2)
  - MALIGNANT NEOPLASM PROGRESSION [None]
  - MYELOPROLIFERATIVE DISORDER [None]
